FAERS Safety Report 6989762-7 (Version None)
Quarter: 2010Q3

REPORT INFORMATION
  Report Type: 
  Country: None (occurrence: None)
  Receive Date: 20100916
  Receipt Date: 20100224
  Transmission Date: 20110219
  Serious: Yes (Other)
  Sender: FDA-Public Use
  Company Number: US-PFIZER INC-2010009013

PATIENT
  Sex: Female

DRUGS (3)
  1. LYRICA [Suspect]
     Indication: HERPES ZOSTER
     Dosage: 25 MG, UNK
     Route: 048
     Dates: start: 20090901
  2. NORVASC [Concomitant]
     Indication: BLOOD PRESSURE ABNORMAL
     Dosage: UNK
     Route: 048
  3. LISINOPRIL [Concomitant]
     Indication: BLOOD PRESSURE ABNORMAL
     Dosage: UNK
     Route: 048

REACTIONS (8)
  - BACK PAIN [None]
  - BREAST PAIN [None]
  - CATARACT [None]
  - DRUG INEFFECTIVE [None]
  - HERPES ZOSTER [None]
  - LIMB DISCOMFORT [None]
  - MOOD ALTERED [None]
  - PRURITUS [None]
